FAERS Safety Report 8557649-4 (Version None)
Quarter: 2012Q3

REPORT INFORMATION
  Report Type: 
  Country: None (occurrence: None)
  Receive Date: 20120801
  Receipt Date: 20120723
  Transmission Date: 20120928
  Serious: Yes (Death, Hospitalization)
  Sender: FDA-Public Use
  Company Number: BR-TEVA-349974ISR

PATIENT
  Age: 75 Year
  Sex: Male

DRUGS (3)
  1. OXALIPLATIN [Suspect]
     Indication: METASTATIC GASTRIC CANCER
     Route: 065
     Dates: start: 20090601, end: 20091101
  2. LEUCOVORIN CALCIUM [Concomitant]
     Indication: METASTATIC GASTRIC CANCER
     Route: 065
     Dates: start: 20090601, end: 20091101
  3. FLUOROURACIL [Concomitant]
     Indication: METASTATIC GASTRIC CANCER
     Route: 065
     Dates: start: 20090601, end: 20091101

REACTIONS (3)
  - INTERSTITIAL LUNG DISEASE [None]
  - PNEUMOTHORAX [None]
  - PULMONARY FIBROSIS [None]
